FAERS Safety Report 11445981 (Version 2)
Quarter: 2015Q4

REPORT INFORMATION
  Report Type: Spontaneous
  Country: DE (occurrence: DE)
  Receive Date: 20150902
  Receipt Date: 20151231
  Transmission Date: 20160304
  Serious: Yes (Other)
  Sender: FDA-Public Use
  Company Number: DE-JNJFOC-20150824666

PATIENT
  Age: 43 Year
  Sex: Female

DRUGS (6)
  1. DIENOGEST [Suspect]
     Active Substance: DIENOGEST
     Indication: ENDOMETRIOSIS
     Route: 048
     Dates: start: 201510
  2. DIENOGEST [Suspect]
     Active Substance: DIENOGEST
     Indication: ENDOMETRIOSIS
     Route: 048
     Dates: start: 201109, end: 20150729
  3. VALETTE [Suspect]
     Active Substance: DIENOGEST\ETHINYL ESTRADIOL
     Indication: ENDOMETRIOSIS
     Route: 048
     Dates: start: 2003, end: 2005
  4. CLEXANE [Concomitant]
     Active Substance: ENOXAPARIN SODIUM
     Indication: THROMBOSIS PROPHYLAXIS
     Route: 065
     Dates: start: 201504
  5. VALETTE [Suspect]
     Active Substance: DIENOGEST\ETHINYL ESTRADIOL
     Indication: ENDOMETRIOSIS
     Route: 048
     Dates: start: 2006, end: 2006
  6. XARELTO [Suspect]
     Active Substance: RIVAROXABAN
     Indication: DEEP VEIN THROMBOSIS
     Route: 048
     Dates: start: 2015, end: 2015

REACTIONS (4)
  - Deep vein thrombosis postoperative [Unknown]
  - Off label use [Unknown]
  - Gastric haemorrhage [Unknown]
  - Vaginal haemorrhage [Unknown]

NARRATIVE: CASE EVENT DATE: 2003
